FAERS Safety Report 12742507 (Version 1)
Quarter: 2016Q3

REPORT INFORMATION
  Report Type: Spontaneous
  Country: IL (occurrence: IL)
  Receive Date: 20160914
  Receipt Date: 20160914
  Transmission Date: 20161109
  Serious: Yes (Death)
  Sender: FDA-Public Use
  Company Number: IL-009507513-1609ISR005490

PATIENT
  Age: 71 Year
  Sex: Male

DRUGS (10)
  1. OMEPRAZOLE. [Concomitant]
     Active Substance: OMEPRAZOLE
     Dosage: UNK
     Route: 048
  2. HYDROCORTISONE. [Concomitant]
     Active Substance: HYDROCORTISONE
     Dosage: UNK
  3. TAZOCIN (AZITHROMYCIN) [Concomitant]
     Dosage: UNK
  4. ZANTAB [Concomitant]
     Active Substance: PROPRANOLOL HYDROCHLORIDE
     Dosage: UNK
  5. FUSID (FUROSEMIDE) [Concomitant]
     Active Substance: FUROSEMIDE
     Dosage: UNK
  6. KEYTRUDA [Suspect]
     Active Substance: PEMBROLIZUMAB
     Indication: PROSTATE CANCER METASTATIC
     Dosage: UNK
     Dates: start: 20160403
  7. LANTUS [Concomitant]
     Active Substance: INSULIN GLARGINE
     Dosage: UNK
  8. REVATIO [Concomitant]
     Active Substance: SILDENAFIL CITRATE
     Dosage: UNK
  9. CARDILOC [Concomitant]
     Active Substance: BISOPROLOL FUMARATE
     Dosage: UNK
  10. NOVO-NORM [Concomitant]
     Active Substance: REPAGLINIDE
     Dosage: UNK

REACTIONS (2)
  - Pneumonitis [Fatal]
  - Product use issue [Unknown]

NARRATIVE: CASE EVENT DATE: 2016
